FAERS Safety Report 8152504-6 (Version None)
Quarter: 2012Q1

REPORT INFORMATION
  Report Type: 
  Country: None (occurrence: None)
  Receive Date: 20120202
  Receipt Date: 20120120
  Transmission Date: 20120608
  Serious: Yes (Other)
  Sender: FDA-Public Use
  Company Number: 2011027766

PATIENT
  Age: 47 Year
  Sex: Male
  Weight: 104.3273 kg

DRUGS (28)
  1. HIZENTRA [Suspect]
  2. HIZENTRA [Suspect]
  3. LEXAPRO [Concomitant]
  4. ZOLOFT [Concomitant]
  5. DILANTIN [Concomitant]
  6. HIZENTRA [Suspect]
  7. METOPROLOL TARTRATE [Concomitant]
  8. PULMICORT [Concomitant]
  9. EXCEDRIN (EXCEDRIN) [Concomitant]
  10. HIZENTRA [Suspect]
     Indication: IMMUNODEFICIENCY COMMON VARIABLE
     Dosage: SEE IMAGE SUBCUTANEOUS
     Route: 058
     Dates: start: 20110108
  11. HIZENTRA [Suspect]
     Indication: IMMUNODEFICIENCY COMMON VARIABLE
     Dosage: SEE IMAGE SUBCUTANEOUS
     Route: 058
     Dates: start: 20111126
  12. HIZENTRA [Suspect]
  13. ATROVENT [Concomitant]
  14. ASPIRIN [Concomitant]
  15. HIZENTRA [Suspect]
  16. ADVAIR DISKUS (SERETIDE) [Concomitant]
  17. DUO-NAB (COMBIVENT) [Concomitant]
  18. FISH OIL (FISH OIL) [Concomitant]
  19. FLECAINIDE ACETATE [Concomitant]
  20. FUROSEMIDE [Concomitant]
  21. NASONEX [Concomitant]
  22. HIZENTRA [Suspect]
  23. LIPITOR [Concomitant]
  24. ALBUTEROL [Concomitant]
  25. HIZENTRA [Suspect]
  26. HIZENTRA [Suspect]
  27. TRICOR [Concomitant]
  28. VITAMIN B-COMPLEX (VITAMIN B-COMPLEX) [Concomitant]

REACTIONS (6)
  - FATIGUE [None]
  - GALLBLADDER DISORDER [None]
  - HEADACHE [None]
  - PAIN [None]
  - PNEUMONIA [None]
  - INFLUENZA LIKE ILLNESS [None]
